FAERS Safety Report 14352534 (Version 1)
Quarter: 2018Q1

REPORT INFORMATION
  Report Type: Spontaneous
  Country: US (occurrence: US)
  Receive Date: 20180104
  Receipt Date: 20180104
  Transmission Date: 20180509
  Serious: No
  Sender: FDA-Public Use
  Company Number: US-JAZZ-DSA_81705_2006

PATIENT
  Age: 54 Year
  Sex: Male
  Weight: 72.73 kg

DRUGS (1)
  1. XYREM [Suspect]
     Active Substance: SODIUM OXYBATE
     Indication: NARCOLEPSY
     Dosage: SINGLE (DF)
     Route: 048

REACTIONS (2)
  - Hypertension [Unknown]
  - Drug ineffective for unapproved indication [Unknown]
